FAERS Safety Report 5917272-4 (Version None)
Quarter: 2008Q4

REPORT INFORMATION
  Report Type: 
  Country: None (occurrence: None)
  Receive Date: 20081014
  Receipt Date: 20080930
  Transmission Date: 20090506
  Serious: Yes (Hospitalization, Other)
  Sender: FDA-Public Use
  Company Number: US-ELI_LILLY_AND_COMPANY-US200808005884

PATIENT
  Sex: Female
  Weight: 52.608 kg

DRUGS (11)
  1. FORTEO [Suspect]
     Indication: OSTEOPOROSIS
     Dosage: UNK, UNK
     Dates: start: 20080320, end: 20080410
  2. FORTEO [Suspect]
     Dosage: UNK, UNK
     Dates: start: 20080801
  3. FORTEO [Suspect]
  4. EVISTA [Suspect]
  5. NORVASC [Concomitant]
  6. LISINOPRIL [Concomitant]
  7. PRIMIDONE [Concomitant]
  8. ESTRACE VAGINAL [Concomitant]
  9. METROGEL [Concomitant]
  10. IMODIUM [Concomitant]
  11. VIACTIV /USA/ [Concomitant]

REACTIONS (9)
  - ABDOMINAL PAIN [None]
  - BODY HEIGHT DECREASED [None]
  - DRUG INEFFECTIVE [None]
  - FALL [None]
  - GASTROINTESTINAL DISORDER [None]
  - GASTROINTESTINAL HAEMORRHAGE [None]
  - HYPERTENSION [None]
  - MESENTERIC VASCULAR INSUFFICIENCY [None]
  - PELVIC FRACTURE [None]
